FAERS Safety Report 5278410-2 (Version None)
Quarter: 2007Q1

REPORT INFORMATION
  Report Type: 
  Country: None (occurrence: None)
  Receive Date: 20070328
  Receipt Date: 20070316
  Transmission Date: 20070707
  Serious: Yes (Hospitalization, Other)
  Sender: FDA-Public Use
  Company Number: 2007CG00242

PATIENT
  Age: 186 Month
  Sex: Male
  Weight: 60 kg

DRUGS (1)
  1. NEXIUM [Suspect]
     Indication: GASTROSTOMY FAILURE
     Route: 048
     Dates: start: 20060501, end: 20061001

REACTIONS (2)
  - ABDOMINAL PAIN [None]
  - GASTRIC DISORDER [None]
